FAERS Safety Report 13399919 (Version 1)
Quarter: 2017Q2

REPORT INFORMATION
  Report Type: Spontaneous
  Country: CN (occurrence: CN)
  Receive Date: 20170404
  Receipt Date: 20170404
  Transmission Date: 20170830
  Serious: Yes (Other)
  Sender: FDA-Public Use
  Company Number: CN-ROCHE-1915819

PATIENT
  Age: 72 Year
  Sex: Male

DRUGS (1)
  1. ACTILYSE [Suspect]
     Active Substance: ALTEPLASE
     Indication: CEREBRAL INFARCTION
     Route: 042

REACTIONS (7)
  - Facial paralysis [Unknown]
  - Paralysis [Unknown]
  - Angioedema [Unknown]
  - Lacunar infarction [Unknown]
  - Oedema peripheral [Unknown]
  - Speech disorder [Unknown]
  - Tongue oedema [Unknown]
